FAERS Safety Report 23641900 (Version 2)
Quarter: 2024Q2

REPORT INFORMATION
  Report Type: Spontaneous
  Country: IT (occurrence: IT)
  Receive Date: 20240318
  Receipt Date: 20240401
  Transmission Date: 20240716
  Serious: Yes (Other)
  Sender: FDA-Public Use
  Company Number: None

PATIENT

DRUGS (4)
  1. VOCABRIA [Suspect]
     Active Substance: CABOTEGRAVIR SODIUM
     Indication: HIV infection
     Dosage: UNK (1ST INJECTION AFTER 1 MONTH OF ORAL LEAD-IN THERAPY WITH CABOTEGRAVIR + RILPIVIRINE CP.)
     Route: 030
     Dates: start: 20240122, end: 20240222
  2. VOCABRIA [Suspect]
     Active Substance: CABOTEGRAVIR SODIUM
  3. VOCABRIA [Suspect]
     Active Substance: CABOTEGRAVIR SODIUM
  4. RILPIVIRINE [Suspect]
     Active Substance: RILPIVIRINE
     Indication: HIV infection
     Dosage: 900 MG (1ST INJECTION AFTER 1 MONTH OF ORAL LEAD-IN THERAPY WITH CABOTEGRAVIR + RILPIVIRINE CP.)
     Route: 030
     Dates: start: 20240122, end: 20240222

REACTIONS (2)
  - Drug ineffective [Not Recovered/Not Resolved]
  - Blood HIV RNA increased [Not Recovered/Not Resolved]

NARRATIVE: CASE EVENT DATE: 20240221
